FAERS Safety Report 13553875 (Version 1)
Quarter: 2017Q2

REPORT INFORMATION
  Report Type: Report from Study
  Country: US (occurrence: BR)
  Receive Date: 20170517
  Receipt Date: 20170517
  Transmission Date: 20170830
  Serious: Yes (Hospitalization)
  Sender: FDA-Public Use
  Company Number: US-SUNOVION-2017SUN002096

PATIENT

DRUGS (1)
  1. INDACATEROL AND GLYCOPYRROLATE [Suspect]
     Active Substance: GLYCOPYRROLATE\INDACATEROL MALEATE
     Indication: PRODUCT USED FOR UNKNOWN INDICATION
     Dosage: INDACATEROL, GLYCOPYRRONIUM BROMIDE 110/50 UG, QD
     Route: 055

REACTIONS (4)
  - Fatigue [Unknown]
  - Body height decreased [Unknown]
  - Dyspnoea [Unknown]
  - Weight increased [Unknown]
